FAERS Safety Report 5546362-3 (Version None)
Quarter: 2007Q4

REPORT INFORMATION
  Report Type: 
  Country: None (occurrence: None)
  Receive Date: 20071206
  Receipt Date: 20071206
  Transmission Date: 20080405
  Serious: Yes (Other)
  Sender: FDA-Public Use
  Company Number: None

PATIENT
  Age: 38 Year
  Sex: Male
  Weight: 81.6475 kg

DRUGS (1)
  1. CHANTIX [Suspect]
     Indication: SMOKING CESSATION THERAPY
     Dates: start: 20070601, end: 20070612

REACTIONS (10)
  - AMNESIA [None]
  - ARTHRALGIA [None]
  - CONFUSIONAL STATE [None]
  - DEPRESSION [None]
  - IMPAIRED WORK ABILITY [None]
  - LOSS OF LIBIDO [None]
  - MENTAL DISORDER [None]
  - PARTNER STRESS [None]
  - SLEEP DISORDER [None]
  - SUICIDAL IDEATION [None]
